FAERS Safety Report 4317250-5 (Version None)
Quarter: 2004Q1

REPORT INFORMATION
  Report Type: 
  Country: None (occurrence: None)
  Receive Date: 20040312
  Receipt Date: 20040225
  Transmission Date: 20041129
  Serious: Yes (Other)
  Sender: FDA-Public Use
  Company Number: 2001-BP-01414 (1)

PATIENT
  Age: 59 Day
  Sex: Female

DRUGS (3)
  1. NEVIRAPINE (SP) [Suspect]
     Indication: PROPHYLAXIS AGAINST HIV INFECTION
     Dosage: 1.2 ML (8 MG/KG ONCE WEEKLY)
     Route: 048
     Dates: start: 20010115, end: 20010312
  2. VITAMIN K TAB [Concomitant]
  3. TICE BCG [Concomitant]

REACTIONS (5)
  - DERMATITIS [None]
  - HIV TEST POSITIVE [None]
  - LYMPHOCYTOSIS [None]
  - THROMBOCYTOPENIA [None]
  - VIRAL UPPER RESPIRATORY TRACT INFECTION [None]
